FAERS Safety Report 9071806 (Version 1)
Quarter: 2013Q1

REPORT INFORMATION
  Report Type: Spontaneous
  Country: GB (occurrence: GB)
  Receive Date: 20130129
  Receipt Date: 20130129
  Transmission Date: 20140127
  Serious: Yes (Other)
  Sender: FDA-Public Use
  Company Number: GB-ABBOTT-13P-167-1042393-00

PATIENT
  Sex: Male

DRUGS (2)
  1. TESTOGEL [Suspect]
     Indication: PRODUCT USED FOR UNKNOWN INDICATION
  2. VIAGRA [Concomitant]
     Indication: PRODUCT USED FOR UNKNOWN INDICATION

REACTIONS (4)
  - Asthma [Unknown]
  - Skin infection [Unknown]
  - Erythema [Unknown]
  - Skin irritation [Unknown]
